APPROVED DRUG PRODUCT: LURASIDONE HYDROCHLORIDE
Active Ingredient: LURASIDONE HYDROCHLORIDE
Strength: 20MG
Dosage Form/Route: TABLET;ORAL
Application: A208060 | Product #001
Applicant: TEVA PHARMACEUTICALS USA INC
Approved: May 17, 2019 | RLD: No | RS: No | Type: DISCN